FAERS Safety Report 19981692 (Version 1)
Quarter: 2021Q4

REPORT INFORMATION
  Report Type: Spontaneous
  Country: DE (occurrence: DE)
  Receive Date: 20211022
  Receipt Date: 20211022
  Transmission Date: 20220304
  Serious: Yes (Other)
  Sender: FDA-Public Use
  Company Number: DE-TEVA-2021-DE-1967585

PATIENT
  Age: 47 Year
  Sex: Male

DRUGS (2)
  1. IBUPROFEN [Suspect]
     Active Substance: IBUPROFEN
     Indication: Pain
     Dosage: 800 MILLIGRAM DAILY; 0-0-2
     Route: 048
     Dates: start: 20211010
  2. PROBENECID [Concomitant]
     Active Substance: PROBENECID

REACTIONS (5)
  - Anaphylactic shock [Recovered/Resolved]
  - Dyspnoea [Unknown]
  - Feeling hot [Unknown]
  - Therapeutic product effect delayed [Unknown]
  - Heart rate decreased [Unknown]

NARRATIVE: CASE EVENT DATE: 20211001
